FAERS Safety Report 4582321-5 (Version None)
Quarter: 2005Q1

REPORT INFORMATION
  Report Type: 
  Country: None (occurrence: None)
  Receive Date: 20050118
  Receipt Date: 20040629
  Transmission Date: 20050727
  Serious: No
  Sender: FDA-Public Use
  Company Number: 372582

PATIENT
  Age: 39 Year
  Sex: 0
  Weight: 73.9 kg

DRUGS (1)
  1. ROCEPHIN [Suspect]
     Indication: CELLULITIS
     Dosage: INTRAVENOUS
     Route: 042
     Dates: start: 20040502, end: 20040502

REACTIONS (5)
  - COUGH [None]
  - DYSPNOEA [None]
  - HYPERSENSITIVITY [None]
  - RASH [None]
  - WHEEZING [None]
